FAERS Safety Report 14786653 (Version 6)
Quarter: 2019Q2

REPORT INFORMATION
  Report Type: Report from Study
  Country: US (occurrence: US)
  Receive Date: 20180420
  Receipt Date: 20190531
  Transmission Date: 20190711
  Serious: Yes (Death, Hospitalization, Other)
  Sender: FDA-Public Use
  Company Number: US-ACTELION-A-NJ2018-171056

PATIENT
  Age: 3 Year
  Sex: Female

DRUGS (38)
  1. BOSENTAN TABLET 32 MG PED US [Suspect]
     Active Substance: BOSENTAN
     Indication: PULMONARY HYPERTENSION
     Dosage: 16 MG, BID
     Route: 048
     Dates: start: 20180329, end: 20190310
  2. FUROSEMIDE. [Concomitant]
     Active Substance: FUROSEMIDE
     Dosage: 20 MG, BID
     Route: 048
  3. POLYETHYLENE GLYCOL [Concomitant]
     Active Substance: POLYETHYLENE GLYCOLS
     Dosage: 17 G, QD
  4. NOREPINEPHRINE. [Concomitant]
     Active Substance: NOREPINEPHRINE
     Route: 042
  5. ACETAMINOPHEN. [Concomitant]
     Active Substance: ACETAMINOPHEN
     Dosage: 160 MG, EVERY 4 HOURS
     Route: 048
     Dates: start: 20171211
  6. ALBUTEROL. [Concomitant]
     Active Substance: ALBUTEROL
     Dosage: UNK
     Dates: start: 20180606
  7. NEXIUM [Concomitant]
     Active Substance: ESOMEPRAZOLE MAGNESIUM
     Dosage: 10 MG, BID
  8. SOTALOL. [Concomitant]
     Active Substance: SOTALOL
     Dosage: 35 MG (7ML) EVERY 12 HOURS
  9. METHYLPREDNISOLONE. [Concomitant]
     Active Substance: METHYLPREDNISOLONE
     Route: 042
  10. SPIRONOLACTONE. [Concomitant]
     Active Substance: SPIRONOLACTONE
     Dosage: 14 MG, BID
     Dates: start: 20180807
  11. ALPHA-D-GALACTOSIDASE [Concomitant]
     Dosage: UNK
     Dates: start: 20180521
  12. CHLOROTHIAZIDE. [Concomitant]
     Active Substance: CHLOROTHIAZIDE
     Dosage: 60 MG, BID
  13. METOLAZONE. [Concomitant]
     Active Substance: METOLAZONE
     Dosage: 1.5 MG, UNK
     Dates: start: 20180618
  14. VASOPRESSIN. [Concomitant]
     Active Substance: VASOPRESSIN
  15. HYDROCORTISONE. [Concomitant]
     Active Substance: HYDROCORTISONE
     Route: 042
  16. MYCOPHENOLATE MOFETIL. [Concomitant]
     Active Substance: MYCOPHENOLATE MOFETIL
  17. POTASSIUM CHLORIDE. [Concomitant]
     Active Substance: POTASSIUM CHLORIDE
     Dosage: 14 MEQ, UNK
     Dates: start: 20180807
  18. WARFARIN [Concomitant]
     Active Substance: WARFARIN
     Dosage: 1.5 MG, QD
     Route: 048
  19. ASPIRIN. [Concomitant]
     Active Substance: ASPIRIN
     Dosage: 81 MG, QD
     Route: 048
     Dates: start: 20180409
  20. FLUTICASONE. [Concomitant]
     Active Substance: FLUTICASONE
     Dosage: 110 UNK, UNK
  21. POLY-VI-SOL [Concomitant]
     Active Substance: VITAMINS
     Dosage: UNK
     Dates: start: 20180606
  22. OXYGEN. [Concomitant]
     Active Substance: OXYGEN
  23. PANTOPRAZOLE [Concomitant]
     Active Substance: PANTOPRAZOLE
  24. REVATIO [Concomitant]
     Active Substance: SILDENAFIL CITRATE
     Dosage: 38 MG, Q12HRS
  25. WARFARIN [Concomitant]
     Active Substance: WARFARIN
     Dosage: 1 MG, QD
     Dates: start: 20180807
  26. BUMETANIDE. [Concomitant]
     Active Substance: BUMETANIDE
     Route: 042
  27. DEXMEDETOMIDINE. [Concomitant]
     Active Substance: DEXMEDETOMIDINE
     Route: 042
  28. CHLOROTHIAZIDE. [Concomitant]
     Active Substance: CHLOROTHIAZIDE
     Dosage: 60 MG, QD
  29. METOLAZONE. [Concomitant]
     Active Substance: METOLAZONE
     Dosage: 2 MG, UNK
  30. EPINEPHRINE. [Concomitant]
     Active Substance: EPINEPHRINE
     Route: 042
  31. MILRINONE [Concomitant]
     Active Substance: MILRINONE
     Dosage: 0.5 MG/KG, PER MIN
  32. ANTITHYMOCYTE IMMUNOGLOBULIN [Concomitant]
     Active Substance: THYMOCYTE IMMUNE GLOBULIN NOS
     Route: 042
  33. RANITIDINE. [Concomitant]
     Active Substance: RANITIDINE
     Dosage: 30 MG, BID
     Route: 048
  34. ARGININE [Concomitant]
     Active Substance: ARGININE
     Dosage: 750 MG, EVERY 24 HOURS
     Dates: start: 20180630, end: 20180808
  35. HEPARIN C [Concomitant]
     Route: 042
  36. MORPHINE [Concomitant]
     Active Substance: MORPHINE
     Route: 042
  37. CEFAZOLIN [Concomitant]
     Active Substance: CEFAZOLIN
     Route: 042
  38. MIDAZOLAM [Concomitant]
     Active Substance: MIDAZOLAM HYDROCHLORIDE

REACTIONS (38)
  - Rhinovirus infection [Unknown]
  - Pulmonary vein stenosis [Unknown]
  - Supraventricular tachycardia [Unknown]
  - Atrial flutter [Unknown]
  - Renal failure [Recovering/Resolving]
  - Vomiting [Unknown]
  - Lung assist device therapy [Unknown]
  - Atrial tachycardia [Unknown]
  - Pulmonary oedema [Unknown]
  - Cardiorenal syndrome [Unknown]
  - Transplant evaluation [Unknown]
  - International normalised ratio increased [Recovering/Resolving]
  - Angioplasty [Unknown]
  - Acute respiratory failure [Unknown]
  - Gastrostomy [Unknown]
  - Abdominal distension [Unknown]
  - Arteriovenous fistula [Unknown]
  - Right ventricular failure [Unknown]
  - Vascular graft [Unknown]
  - Catheterisation cardiac [Unknown]
  - Fluid overload [Unknown]
  - Transaminases increased [Recovering/Resolving]
  - Respiratory distress [Unknown]
  - Anaemia [Unknown]
  - Packed red blood cell transfusion [Unknown]
  - Parainfluenzae virus infection [Unknown]
  - Hospitalisation [Unknown]
  - Venous stent insertion [Unknown]
  - Heart transplant [Unknown]
  - Cardio-respiratory arrest [Fatal]
  - Delirium [Unknown]
  - Vasoplegia syndrome [Unknown]
  - Organ failure [Unknown]
  - Ventricular dysfunction [Unknown]
  - Coronary arterial stent insertion [Unknown]
  - Hepatomegaly [Unknown]
  - Hypotension [Unknown]
  - Transplant rejection [Unknown]

NARRATIVE: CASE EVENT DATE: 20180801
